FAERS Safety Report 22989787 (Version 4)
Quarter: 2024Q3

REPORT INFORMATION
  Report Type: Report from Study
  Country: IL (occurrence: IL)
  Receive Date: 20230927
  Receipt Date: 20240822
  Transmission Date: 20241017
  Serious: Yes (Hospitalization)
  Sender: ALNYLAM PHARMACEUTICALS
  Company Number: IL-ALNYLAM PHARMACEUTICALS, INC.-ALN-2023-003592

PATIENT

DRUGS (4)
  1. GIVLAARI [Suspect]
     Active Substance: GIVOSIRAN SODIUM
     Indication: Porphyria
     Dosage: 2.5 MILLIGRAM/KILOGRAM (150 MG)
     Route: 065
     Dates: start: 20230517, end: 20230517
  2. GIVLAARI [Suspect]
     Active Substance: GIVOSIRAN SODIUM
     Dosage: 2.5 MILLIGRAM/KILOGRAM (150 MG)
     Route: 065
     Dates: start: 20230719, end: 20230719
  3. GIVLAARI [Suspect]
     Active Substance: GIVOSIRAN SODIUM
     Dosage: UNK
     Route: 065
     Dates: start: 20230816, end: 20230816
  4. FUROSEMIDE [Concomitant]
     Active Substance: FUROSEMIDE
     Indication: Product used for unknown indication
     Dosage: 40 MILLIGRAM
     Route: 065
     Dates: start: 20230621, end: 20230717

REACTIONS (4)
  - Blood creatinine increased [Unknown]
  - Diarrhoea [Unknown]
  - Glomerular filtration rate decreased [Not Recovered/Not Resolved]
  - Therapy interrupted [Unknown]

NARRATIVE: CASE EVENT DATE: 20230920
